FAERS Safety Report 12971384 (Version 1)
Quarter: 2016Q4

REPORT INFORMATION
  Report Type: Spontaneous
  Country: US (occurrence: US)
  Receive Date: 20161123
  Receipt Date: 20161123
  Transmission Date: 20170207
  Serious: No
  Sender: FDA-Public Use
  Company Number: US-JAZZ-2016-US-020004

PATIENT
  Sex: Female

DRUGS (24)
  1. XYREM [Suspect]
     Active Substance: SODIUM OXYBATE
     Dosage: DOSE ADJUSTMENTS
     Route: 048
     Dates: start: 201603, end: 201603
  2. DULERA [Concomitant]
     Active Substance: FORMOTEROL FUMARATE DIHYDRATE\MOMETASONE FUROATE
  3. IBUPROFEN. [Concomitant]
     Active Substance: IBUPROFEN
  4. METHYLPHENIDATE. [Concomitant]
     Active Substance: METHYLPHENIDATE
  5. ATENOLOL. [Concomitant]
     Active Substance: ATENOLOL
  6. CAMBIA [Concomitant]
     Active Substance: DICLOFENAC POTASSIUM
  7. FLONASE                            /00908302/ [Concomitant]
     Active Substance: MOMETASONE FUROATE
  8. IMITREX [Concomitant]
     Active Substance: SUMATRIPTAN SUCCINATE
  9. XYREM [Suspect]
     Active Substance: SODIUM OXYBATE
     Indication: NARCOLEPSY
     Dosage: 2.25 G, BID
     Route: 048
     Dates: start: 201603, end: 201603
  10. NORCO [Concomitant]
     Active Substance: ACETAMINOPHEN\HYDROCODONE BITARTRATE
  11. CYCLOBENZAPRINE [Concomitant]
     Active Substance: CYCLOBENZAPRINE
  12. DICLOFENAC POTASICO [Concomitant]
  13. MULTIVITAMINS                      /00116001/ [Concomitant]
  14. PROAIR HFA [Concomitant]
     Active Substance: ALBUTEROL SULFATE
  15. PANTOPRAZOLE SODIUM. [Concomitant]
     Active Substance: PANTOPRAZOLE SODIUM
  16. VITAMIN B12 [Concomitant]
     Active Substance: CYANOCOBALAMIN
  17. VITAMIN D                          /00107901/ [Concomitant]
     Active Substance: ERGOCALCIFEROL
  18. MELATONIN [Concomitant]
     Active Substance: MELATONIN
  19. METOCLOPRAMIDE. [Concomitant]
     Active Substance: METOCLOPRAMIDE
  20. PROVIGIL [Concomitant]
     Active Substance: MODAFINIL
  21. XYREM [Suspect]
     Active Substance: SODIUM OXYBATE
     Dosage: 4.5 G, BID
     Route: 048
     Dates: start: 201603
  22. ACETAZOLAMIDE. [Concomitant]
     Active Substance: ACETAZOLAMIDE
  23. NECON                              /00013701/ [Concomitant]
  24. VOLTAREN [Concomitant]
     Active Substance: DICLOFENAC SODIUM

REACTIONS (1)
  - Hypersensitivity [Not Recovered/Not Resolved]
